FAERS Safety Report 10820854 (Version 1)
Quarter: 2015Q1

REPORT INFORMATION
  Report Type: Spontaneous
  Country: IT (occurrence: IT)
  Receive Date: 20150218
  Receipt Date: 20150218
  Transmission Date: 20150721
  Serious: Yes (Hospitalization)
  Sender: FDA-Public Use
  Company Number: IT-B.I. PHARMACEUTICALS,INC./RIDGEFIELD-2015-BI-07213IT

PATIENT
  Age: 84 Year
  Sex: Male

DRUGS (3)
  1. LINAGLIPTIN [Suspect]
     Active Substance: LINAGLIPTIN
     Indication: SUICIDE ATTEMPT
     Dosage: TOTAL DOSAGE OF 45 MG
     Route: 048
     Dates: start: 20150120, end: 20150120
  2. CORDARONE [Suspect]
     Active Substance: AMIODARONE HYDROCHLORIDE
     Indication: SUICIDE ATTEMPT
     Dosage: TOTAL DOSAGE OF 1200 MG
     Route: 048
     Dates: start: 20150121, end: 20150121
  3. COUMADIN [Suspect]
     Active Substance: WARFARIN SODIUM
     Indication: SUICIDE ATTEMPT
     Dosage: FORMULATION:DIVISIBLE TABLETS, TOTAL DOSAGE OF 75 MG
     Route: 048
     Dates: start: 20150120, end: 20150120

REACTIONS (2)
  - Drug abuse [Unknown]
  - Suicide attempt [Unknown]

NARRATIVE: CASE EVENT DATE: 20150121
